FAERS Safety Report 14965719 (Version 2)
Quarter: 2018Q2

REPORT INFORMATION
  Report Type: Spontaneous
  Country: US (occurrence: US)
  Receive Date: 20180602
  Receipt Date: 20180625
  Transmission Date: 20180711
  Serious: Yes (Other)
  Sender: FDA-Public Use
  Company Number: US-AUROBINDO-AUR-APL-2018-029034

PATIENT
  Age: 38 Year
  Sex: Male

DRUGS (1)
  1. AZITHROMYCIN ANHYDROUS. [Suspect]
     Active Substance: AZITHROMYCIN ANHYDROUS
     Indication: UPPER RESPIRATORY TRACT INFECTION
     Dosage: ()
     Route: 065

REACTIONS (12)
  - Swelling [Unknown]
  - Neutrophilia [Unknown]
  - Eosinophilia [Unknown]
  - C-reactive protein increased [Unknown]
  - Acute generalised exanthematous pustulosis [Recovered/Resolved with Sequelae]
  - Oedema peripheral [Unknown]
  - Erythema [Unknown]
  - Dermatitis [Unknown]
  - Weight increased [Unknown]
  - Chills [Unknown]
  - Leukocytosis [Unknown]
  - Rash pustular [Recovered/Resolved]
